FAERS Safety Report 12253676 (Version 2)
Quarter: 2016Q2

REPORT INFORMATION
  Report Type: Spontaneous
  Country: US (occurrence: US)
  Receive Date: 20160411
  Receipt Date: 20160425
  Transmission Date: 20160815
  Serious: Yes (Other)
  Sender: FDA-Public Use
  Company Number: US-MDT-ADR-2016-00647

PATIENT
  Age: 54 Year
  Sex: Female

DRUGS (6)
  1. GABAPENTIN. [Suspect]
     Active Substance: GABAPENTIN
  2. MODAFINIL. [Suspect]
     Active Substance: MODAFINIL
  3. BACLOFEN. [Suspect]
     Active Substance: BACLOFEN
     Route: 037
     Dates: start: 20151221
  4. BACLOFEN. [Suspect]
     Active Substance: BACLOFEN
     Route: 048
  5. TEMAZEPAM. [Suspect]
     Active Substance: TEMAZEPAM
  6. BUPROPION. [Suspect]
     Active Substance: BUPROPION

REACTIONS (2)
  - Cerebrospinal fluid leakage [Unknown]
  - Unevaluable event [Unknown]
